FAERS Safety Report 25387663 (Version 4)
Quarter: 2025Q4

REPORT INFORMATION
  Report Type: Report from Study
  Country: US (occurrence: US)
  Receive Date: 20250603
  Receipt Date: 20251207
  Transmission Date: 20260118
  Serious: Yes (Other)
  Sender: ABBVIE
  Company Number: US-ABBVIE-6305868

PATIENT
  Age: 62 Year
  Sex: Male

DRUGS (4)
  1. SKYRIZI [Suspect]
     Active Substance: RISANKIZUMAB-RZAA
     Indication: Psoriasis
     Route: 058
     Dates: start: 20200930
  2. SKYRIZI [Suspect]
     Active Substance: RISANKIZUMAB-RZAA
     Dosage: STOP DATE 2025
     Route: 058
     Dates: start: 20250101
  3. SKYRIZI [Suspect]
     Active Substance: RISANKIZUMAB-RZAA
     Route: 058
     Dates: start: 2021
  4. SKYRIZI [Suspect]
     Active Substance: RISANKIZUMAB-RZAA
     Route: 058
     Dates: start: 202506

REACTIONS (8)
  - Spinal operation [Unknown]
  - Psoriasis [Recovered/Resolved]
  - Spinal operation [Recovered/Resolved]
  - Neurological procedural complication [Recovering/Resolving]
  - Psoriasis [Unknown]
  - Device fastener issue [Not Recovered/Not Resolved]
  - Intervertebral disc degeneration [Unknown]
  - Procedural pain [Not Recovered/Not Resolved]

NARRATIVE: CASE EVENT DATE: 20240718
